FAERS Safety Report 16275349 (Version 1)
Quarter: 2019Q2

REPORT INFORMATION
  Report Type: Report from Study
  Country: None (occurrence: US)
  Receive Date: 20190506
  Receipt Date: 20190506
  Transmission Date: 20190711
  Serious: Yes (Other)
  Sender: FDA-Public Use
  Company Number: US-ABBVIE-19K-163-2764275-00

PATIENT
  Age: 67 Year
  Sex: Female

DRUGS (3)
  1. METHOTREXATE. [Suspect]
     Active Substance: METHOTREXATE
     Indication: ARTHRITIS
     Route: 065
  2. HUMIRA [Suspect]
     Active Substance: ADALIMUMAB
     Route: 058
     Dates: start: 2019
  3. HUMIRA [Suspect]
     Active Substance: ADALIMUMAB
     Indication: RHEUMATOID ARTHRITIS
     Route: 058
     Dates: end: 2017

REACTIONS (12)
  - Musculoskeletal disorder [Unknown]
  - Muscle strain [Unknown]
  - Fine motor skill dysfunction [Not Recovered/Not Resolved]
  - Inflammatory marker increased [Unknown]
  - Rheumatoid arthritis [Not Recovered/Not Resolved]
  - Injection site erythema [Recovered/Resolved]
  - Injection site nodule [Recovering/Resolving]
  - Joint arthroplasty [Unknown]
  - Injection site pain [Recovering/Resolving]
  - Injection site ulcer [Recovered/Resolved]
  - Drug ineffective [Not Recovered/Not Resolved]
  - Drug interaction [Unknown]

NARRATIVE: CASE EVENT DATE: 2017
